FAERS Safety Report 6986354-0 (Version None)
Quarter: 2010Q3

REPORT INFORMATION
  Report Type: 
  Country: None (occurrence: None)
  Receive Date: 20100915
  Receipt Date: 20090811
  Transmission Date: 20110219
  Serious: No
  Sender: FDA-Public Use
  Company Number: US-WYE-H09979409

PATIENT
  Sex: Female
  Weight: 99.88 kg

DRUGS (4)
  1. PRISTIQ [Suspect]
     Indication: DEPRESSION
     Route: 048
     Dates: start: 20090101, end: 20090615
  2. PRISTIQ [Suspect]
     Dosage: HALF A 50 MG TABLET DAILY FOR ONE WEEK
     Route: 048
     Dates: start: 20090616, end: 20090622
  3. PRISTIQ [Suspect]
     Dosage: 1/4 OF A 50 MG TABLET DAILY
     Route: 048
     Dates: start: 20090623
  4. TRANXENE [Concomitant]
     Route: 048
     Dates: start: 20081101

REACTIONS (12)
  - ANGER [None]
  - DIZZINESS [None]
  - DRUG INEFFECTIVE [None]
  - DRUG WITHDRAWAL SYNDROME [None]
  - INSOMNIA [None]
  - INTENTIONAL DRUG MISUSE [None]
  - IRRITABILITY [None]
  - MOOD SWINGS [None]
  - NAUSEA [None]
  - PRESYNCOPE [None]
  - THERAPEUTIC RESPONSE UNEXPECTED [None]
  - WEIGHT DECREASED [None]
